FAERS Safety Report 14360331 (Version 1)
Quarter: 2018Q1

REPORT INFORMATION
  Report Type: Spontaneous
  Country: BE (occurrence: BE)
  Receive Date: 20180106
  Receipt Date: 20180106
  Transmission Date: 20180509
  Serious: Yes (Life-Threatening, Hospitalization, Other)
  Sender: FDA-Public Use
  Company Number: BE-ACCORD-062604

PATIENT
  Age: 66 Year
  Sex: Male

DRUGS (7)
  1. OMEPRAZOLE. [Concomitant]
     Active Substance: OMEPRAZOLE
     Dosage: PROPHYLACTIC DOSE
  2. LORMETAZEPAM [Concomitant]
     Active Substance: LORMETAZEPAM
     Dosage: PROPHYLACTIC DOSE
  3. HEPARIN [Concomitant]
     Active Substance: HEPARIN SODIUM
     Dosage: PROPHYLACTIC DOSE, LOW MOLECULAR WEIGHT HEPARIN
  4. CISPLATIN. [Suspect]
     Active Substance: CISPLATIN
     Indication: SMALL CELL LUNG CANCER
     Dosage: 1 AND 2 CYCLE
     Dates: start: 2016
  5. AMITRIPTYLINE [Concomitant]
     Active Substance: AMITRIPTYLINE
  6. ETOPOSIDE. [Suspect]
     Active Substance: ETOPOSIDE
     Indication: SMALL CELL LUNG CANCER
     Dosage: 1 AND 2 CYCLE
     Dates: start: 2016
  7. METHYLPREDNISOLONE. [Concomitant]
     Active Substance: METHYLPREDNISOLONE
     Dosage: PROPHYLACTIC DOSE

REACTIONS (6)
  - Septic shock [Unknown]
  - Intestinal ischaemia [Unknown]
  - Large intestine perforation [Unknown]
  - Neutropenia [Unknown]
  - Multiple organ dysfunction syndrome [Unknown]
  - Metabolic acidosis [Unknown]

NARRATIVE: CASE EVENT DATE: 2016
